FAERS Safety Report 4300999-8 (Version None)
Quarter: 2004Q1

REPORT INFORMATION
  Report Type: 
  Country: None (occurrence: None)
  Receive Date: 20040219
  Receipt Date: 20040203
  Transmission Date: 20041129
  Serious: Yes (Death)
  Sender: FDA-Public Use
  Company Number: 2004-06650

PATIENT
  Age: 60 Year
  Sex: Female

DRUGS (2)
  1. ADEFOVIR DIPIVOXIL KIT [Suspect]
     Indication: HEPATITIS B
     Dosage: MG PO
     Route: 048
  2. LAMIVUDINE [Concomitant]

REACTIONS (11)
  - AMMONIA INCREASED [None]
  - BLOOD ALBUMIN INCREASED [None]
  - EPISTAXIS [None]
  - FIBRIN D DIMER INCREASED [None]
  - FIBRIN DEGRADATION PRODUCTS INCREASED [None]
  - HAEMORRHAGIC ASCITES [None]
  - HEPATIC ENCEPHALOPATHY [None]
  - PERITONITIS BACTERIAL [None]
  - PETECHIAE [None]
  - PLEURAL EFFUSION [None]
  - PROTHROMBIN TIME PROLONGED [None]
